FAERS Safety Report 12707243 (Version 2)
Quarter: 2016Q4

REPORT INFORMATION
  Report Type: Report from Study
  Country: JP (occurrence: JP)
  Receive Date: 20160901
  Receipt Date: 20161011
  Transmission Date: 20170207
  Serious: Yes (Hospitalization)
  Sender: FDA-Public Use
  Company Number: JP-PFIZER INC-2016371458

PATIENT
  Age: 29 Year
  Sex: Male

DRUGS (38)
  1. LYRICA [Suspect]
     Active Substance: PREGABALIN
     Dosage: 25 MG, 1X/DAY
     Route: 048
     Dates: start: 20141205, end: 20150607
  2. METHOTREXATE SODIUM. [Suspect]
     Active Substance: METHOTREXATE SODIUM
     Dosage: 4 MG, WEEKLY
     Route: 048
     Dates: end: 20140828
  3. PREDNISOLONE. [Suspect]
     Active Substance: PREDNISOLONE
     Dosage: 20 MG, DAILY
     Route: 048
     Dates: start: 20140829, end: 20140925
  4. PREDNISOLONE. [Suspect]
     Active Substance: PREDNISOLONE
     Dosage: 18 MG, 1X/DAY
     Route: 048
     Dates: start: 20140926, end: 20141030
  5. PREDNISOLONE. [Suspect]
     Active Substance: PREDNISOLONE
     Dosage: 10 MG, 1X/DAY
     Route: 048
     Dates: start: 20150313, end: 20150507
  6. ELCITONIN [Concomitant]
     Active Substance: ELCATONIN
     Dosage: 20 UNK MONTHLY
     Route: 030
     Dates: start: 20150408
  7. METHOTREXATE SODIUM. [Suspect]
     Active Substance: METHOTREXATE SODIUM
     Dosage: 8 MG, WEEKLY
     Route: 048
     Dates: start: 20140829, end: 20140910
  8. METHOTREXATE SODIUM. [Suspect]
     Active Substance: METHOTREXATE SODIUM
     Dosage: 10 MG, WEEKLY
     Route: 048
     Dates: start: 20140911, end: 20141030
  9. METHOTREXATE SODIUM. [Suspect]
     Active Substance: METHOTREXATE SODIUM
     Dosage: 16 MG, WEEKLY
     Route: 048
     Dates: start: 20150109, end: 20150519
  10. TACROLIMUS. [Suspect]
     Active Substance: TACROLIMUS
     Dosage: 1 MG, 1X/DAY
     Route: 048
     Dates: start: 20150313
  11. ONEDURO [Concomitant]
     Active Substance: FENTANYL
     Indication: PAIN
     Dosage: 0.84 MG, 1X/DAY
     Route: 061
     Dates: start: 20140703, end: 20140717
  12. ONEDURO [Concomitant]
     Active Substance: FENTANYL
     Dosage: 3.4 MG, 1X/DAY
     Route: 061
     Dates: start: 20140911, end: 20150519
  13. REFLEX [Concomitant]
     Active Substance: MIRTAZAPINE
     Dosage: 15 MG, 1X/DAY
     Route: 048
     Dates: start: 20141205, end: 20150507
  14. BAKTAR [Concomitant]
     Active Substance: SULFAMETHOXAZOLE\TRIMETHOPRIM
     Indication: PROPHYLAXIS
     Dosage: 1 DF, 1X/DAY
     Route: 048
     Dates: start: 20150213
  15. ITRIZOLE [Concomitant]
     Active Substance: ITRACONAZOLE
     Indication: PROPHYLAXIS
     Dosage: 10 MG, DAILY
     Route: 048
     Dates: start: 20150508, end: 20150519
  16. PREDNISOLONE. [Suspect]
     Active Substance: PREDNISOLONE
     Dosage: 15 MG, 1X/DAY
     Route: 048
     Dates: start: 20141031, end: 20141204
  17. PREDNISOLONE. [Suspect]
     Active Substance: PREDNISOLONE
     Dosage: 12 MG, 1X/DAY
     Route: 048
     Dates: start: 20150213, end: 20150312
  18. PREDNISOLONE. [Suspect]
     Active Substance: PREDNISOLONE
     Dosage: 8 MG, 1X/DAY
     Route: 048
     Dates: start: 20150508, end: 20150519
  19. LANDSEN [Concomitant]
     Active Substance: CLONAZEPAM
     Dosage: 0.25 MG, 1X/DAY
     Route: 048
     Dates: start: 20140703, end: 20140805
  20. LYRICA [Suspect]
     Active Substance: PREGABALIN
     Indication: FIBROMYALGIA
     Dosage: 25 MG, 1X/DAY
     Route: 048
     Dates: start: 20140703, end: 20140828
  21. PREDNISOLONE. [Suspect]
     Active Substance: PREDNISOLONE
     Dosage: 10 MG, DAILY
     Route: 048
     Dates: end: 20140828
  22. LANDSEN [Concomitant]
     Active Substance: CLONAZEPAM
     Dosage: 0.5 MG, 1X/DAY
     Route: 048
     Dates: start: 20140806, end: 20150519
  23. DENOTAS CHEWABLE [Concomitant]
     Active Substance: CALCIUM CARBONATE\CHOLECALCIFEROL\MAGNESIUM CARBONATE
     Dosage: 2 DF, 1X/DAY
     Route: 048
     Dates: start: 20140926, end: 20150519
  24. TACROLIMUS. [Suspect]
     Active Substance: TACROLIMUS
     Dosage: 0.5 MG, 1X/DAY
     Route: 048
     Dates: start: 20150213, end: 20150312
  25. LEXOTAN [Concomitant]
     Active Substance: BROMAZEPAM
     Dosage: 10 MG, DAILY
     Route: 048
     Dates: start: 20150508, end: 20150519
  26. AZULFIDINE EN-TABS [Suspect]
     Active Substance: SULFASALAZINE
     Dosage: 1 G, 2X/DAY
     Route: 048
     Dates: end: 20150519
  27. ONEDURO [Concomitant]
     Active Substance: FENTANYL
     Dosage: 1.7 MG, 1X/DAY
     Route: 061
     Dates: start: 20140829, end: 20140910
  28. REGNITE [Concomitant]
     Active Substance: GABAPENTIN ENACARBIL
     Dosage: 600 MG, 1X/DAY
     Route: 048
     Dates: start: 20140806, end: 20150507
  29. BI?SIFROL [Concomitant]
     Dosage: 0.125 MG, 1X/DAY
     Route: 048
     Dates: start: 20150408
  30. LYRICA [Suspect]
     Active Substance: PREGABALIN
     Dosage: 50 MG, DAILY
     Route: 048
     Dates: start: 20140829, end: 20141204
  31. PREDNISOLONE. [Suspect]
     Active Substance: PREDNISOLONE
     Dosage: 10 MG, 1X/DAY
     Route: 048
     Dates: start: 20141205, end: 20150108
  32. PRALIA [Concomitant]
     Active Substance: DENOSUMAB
     Dosage: 60 MG, 1X/DAY
     Route: 058
     Dates: start: 20140926, end: 20150519
  33. MYSLEE [Concomitant]
     Active Substance: ZOLPIDEM TARTRATE
     Dosage: 10 MG, AS NEEDED
     Route: 048
     Dates: start: 20150213, end: 20150519
  34. PAXIL CR [Concomitant]
     Active Substance: PAROXETINE HYDROCHLORIDE
     Dosage: 1.25 MG, 1X/DAY
     Route: 048
     Dates: start: 20150508, end: 20150519
  35. NOVAMIN [Concomitant]
     Active Substance: PROCHLORPERAZINE MALEATE
     Dosage: 10 MG, DAILY
     Route: 048
     Dates: start: 20150508, end: 20150519
  36. METHOTREXATE SODIUM. [Suspect]
     Active Substance: METHOTREXATE SODIUM
     Dosage: 12 MG, WEEKLY
     Route: 048
     Dates: start: 20141031, end: 20150108
  37. PREDNISOLONE. [Suspect]
     Active Substance: PREDNISOLONE
     Dosage: 13 MG, 1X/DAY
     Route: 048
     Dates: start: 20150109, end: 20150212
  38. FOLIAMIN [Concomitant]
     Active Substance: FOLIC ACID
     Dosage: 5 MG, WEEKLY
     Route: 048
     Dates: start: 20140829, end: 20150519

REACTIONS (1)
  - Pneumonia bacterial [Recovered/Resolved]

NARRATIVE: CASE EVENT DATE: 20150518
